FAERS Safety Report 22347175 (Version 1)
Quarter: 2023Q2

REPORT INFORMATION
  Report Type: Spontaneous
  Country: US (occurrence: US)
  Receive Date: 20230520
  Receipt Date: 20230520
  Transmission Date: 20230721
  Serious: Yes (Other)
  Sender: FDA-Public Use
  Company Number: US-LUOXINA-LUX-2023-US-LIT-00031

PATIENT
  Age: 73 Year
  Sex: Male

DRUGS (3)
  1. TOBRAMYCIN [Suspect]
     Active Substance: TOBRAMYCIN
     Indication: Pseudomonas infection
     Dosage: WAS MAINTAINED ON A TWO WEEK ON AND TWO WEEK OFF SCHEDULE
  2. TOBRAMYCIN [Suspect]
     Active Substance: TOBRAMYCIN
  3. TACROLIMUS [Concomitant]
     Active Substance: TACROLIMUS
     Indication: Pseudomonas infection

REACTIONS (1)
  - Acute kidney injury [Recovering/Resolving]
